FAERS Safety Report 10601007 (Version 1)
Quarter: 2014Q4

REPORT INFORMATION
  Report Type: Spontaneous
  Country: BR (occurrence: BR)
  Receive Date: 20141124
  Receipt Date: 20141124
  Transmission Date: 20150529
  Serious: Yes (Other)
  Sender: FDA-Public Use
  Company Number: PHHY2014BR148093

PATIENT
  Sex: Female

DRUGS (1)
  1. TASIGNA [Suspect]
     Active Substance: NILOTINIB
     Indication: CHRONIC MYELOID LEUKAEMIA
     Dosage: 400 MG, BID
     Route: 048
     Dates: start: 201409

REACTIONS (5)
  - Alanine aminotransferase increased [Unknown]
  - Pneumonia [Unknown]
  - Vomiting [Unknown]
  - Nausea [Unknown]
  - Aspartate aminotransferase increased [Unknown]
